FAERS Safety Report 8902796 (Version 1)
Quarter: 2012Q4

REPORT INFORMATION
  Report Type: 
  Country: ES (occurrence: ES)
  Receive Date: 20121112
  Receipt Date: 20121112
  Transmission Date: 20130627
  Serious: Yes (Other)
  Sender: FDA-Public Use
  Company Number: ES-AMGEN-ESPSP2012071636

PATIENT
  Age: 47 Year
  Sex: Female

DRUGS (5)
  1. ETANERCEPT [Suspect]
     Indication: PSORIATIC ARTHROPATHY
     Dosage: 50 mg, 2 times/wk
     Dates: start: 201011, end: 201012
  2. 8-METHOXYPSORALEN [Concomitant]
     Dosage: 40 mg, UNK
  3. CALCIPOTRIOL/BETAMETHASONE DIPROPIONATE [Concomitant]
     Indication: PSORIATIC ARTHROPATHY
     Dosage: UNK
  4. CICLOSPORIN [Concomitant]
     Dosage: 300 mg/day
  5. METHOTREXATE [Concomitant]
     Dosage: UNK

REACTIONS (10)
  - Condition aggravated [Recovering/Resolving]
  - Gait disturbance [Recovering/Resolving]
  - Nail dystrophy [Recovering/Resolving]
  - Folliculitis [Recovering/Resolving]
  - Alopecia [Recovered/Resolved]
  - Hyperkeratosis [Recovering/Resolving]
  - Arthritis [Recovering/Resolving]
  - Musculoskeletal stiffness [Recovered/Resolved]
  - Costochondritis [Recovered/Resolved]
  - Drug ineffective [Unknown]
